FAERS Safety Report 13425889 (Version 1)
Quarter: 2017Q2

REPORT INFORMATION
  Report Type: Report from Study
  Country: CO (occurrence: CO)
  Receive Date: 20170411
  Receipt Date: 20170411
  Transmission Date: 20170830
  Serious: Yes (Other)
  Sender: FDA-Public Use
  Company Number: CO-AMGEN-COLSL2017037112

PATIENT
  Age: 75 Year
  Sex: Male
  Weight: 58 kg

DRUGS (4)
  1. KYPROLIS [Suspect]
     Active Substance: CARFILZOMIB
     Indication: PLASMA CELL MYELOMA
     Dosage: 60 MG, 2 TIMES/WK
     Route: 042
     Dates: start: 20170225
  2. LENALIDOMIDE [Concomitant]
     Active Substance: LENALIDOMIDE
     Dosage: 15 MG, UNK
  3. TAMSULOSIN [Concomitant]
     Active Substance: TAMSULOSIN
     Dosage: 0.4 MG, UNK
  4. KYPROLIS [Suspect]
     Active Substance: CARFILZOMIB
     Dosage: 60 MG, QWK
     Route: 042
     Dates: start: 2017

REACTIONS (3)
  - Oropharyngeal pain [Not Recovered/Not Resolved]
  - Diarrhoea [Not Recovered/Not Resolved]
  - Gingival abscess [Not Recovered/Not Resolved]

NARRATIVE: CASE EVENT DATE: 20170306
